FAERS Safety Report 15274489 (Version 3)
Quarter: 2018Q4

REPORT INFORMATION
  Report Type: Report from Study
  Country: US (occurrence: US)
  Receive Date: 20180814
  Receipt Date: 20181025
  Transmission Date: 20190204
  Serious: Yes (Hospitalization)
  Sender: FDA-Public Use
  Company Number: US-ROCHE-2143715

PATIENT
  Age: 61 Year
  Sex: Male
  Weight: 103.3 kg

DRUGS (14)
  1. CARBOPLATIN. [Suspect]
     Active Substance: CARBOPLATIN
     Indication: DIFFUSE LARGE B-CELL LYMPHOMA
     Route: 065
     Dates: start: 20180606
  2. VENETOCLAX. [Suspect]
     Active Substance: VENETOCLAX
     Route: 048
     Dates: start: 20180725
  3. RITUXIMAB. [Suspect]
     Active Substance: RITUXIMAB
     Route: 065
  4. RITUXIMAB. [Suspect]
     Active Substance: RITUXIMAB
     Indication: DIFFUSE LARGE B-CELL LYMPHOMA
     Route: 065
     Dates: start: 20180605
  5. MESNA. [Concomitant]
     Active Substance: MESNA
     Route: 065
     Dates: start: 20180725
  6. ETOPOSIDE. [Suspect]
     Active Substance: ETOPOSIDE
     Route: 065
     Dates: start: 20180724
  7. VENETOCLAX. [Suspect]
     Active Substance: VENETOCLAX
     Indication: DIFFUSE LARGE B-CELL LYMPHOMA
     Dosage: ON DAYS 1-10 OF CYCLE 1-3
     Route: 048
     Dates: start: 20180604
  8. CARBOPLATIN. [Suspect]
     Active Substance: CARBOPLATIN
     Route: 065
     Dates: start: 20180724
  9. ETOPOSIDE. [Suspect]
     Active Substance: ETOPOSIDE
     Route: 065
     Dates: start: 20180725
  10. IFOSFAMIDE. [Suspect]
     Active Substance: IFOSFAMIDE
     Indication: DIFFUSE LARGE B-CELL LYMPHOMA
     Dosage: 06/JUN/2018, ON 07/JUN/2018
     Route: 065
     Dates: start: 20180605
  11. MESNA. [Concomitant]
     Active Substance: MESNA
     Route: 065
  12. DEXAMETHASONE. [Concomitant]
     Active Substance: DEXAMETHASONE
     Route: 065
     Dates: start: 20180723
  13. ETOPOSIDE. [Suspect]
     Active Substance: ETOPOSIDE
     Indication: DIFFUSE LARGE B-CELL LYMPHOMA
     Dosage: LATER RECEIVED ON 06-JUN-2018 AND 07-JUN-2018
     Route: 065
     Dates: start: 20180605
  14. DEXAMETHASONE. [Concomitant]
     Active Substance: DEXAMETHASONE
     Route: 065
     Dates: start: 20180725

REACTIONS (6)
  - Platelet count decreased [Unknown]
  - Febrile neutropenia [Recovered/Resolved]
  - Haemoglobin decreased [Unknown]
  - Asthenia [Unknown]
  - Pallor [Unknown]
  - Dyspnoea [Unknown]

NARRATIVE: CASE EVENT DATE: 20180615
